FAERS Safety Report 4656526-9 (Version None)
Quarter: 2005Q2

REPORT INFORMATION
  Report Type: 
  Country: None (occurrence: None)
  Receive Date: 20050505
  Receipt Date: 20050427
  Transmission Date: 20051028
  Serious: Yes (Disabling)
  Sender: FDA-Public Use
  Company Number: S05-UKI-01638-01

PATIENT
  Age: 57 Year
  Sex: Male

DRUGS (3)
  1. EBIXA (MEMANTINE) [Suspect]
     Indication: DEMENTIA ALZHEIMER'S TYPE
     Dosage: 10 MG QD PO
     Route: 048
     Dates: start: 20020201
  2. TAMSULOSIN MR [Concomitant]
  3. MIRTAZAPINE [Concomitant]

REACTIONS (6)
  - ABDOMINAL DISTENSION [None]
  - ABDOMINAL PAIN UPPER [None]
  - ANOREXIA [None]
  - DRUG INEFFECTIVE [None]
  - DYSPEPSIA [None]
  - WEIGHT DECREASED [None]
